FAERS Safety Report 21352526 (Version 1)
Quarter: 2022Q3

REPORT INFORMATION
  Report Type: Spontaneous
  Country: CN (occurrence: CN)
  Receive Date: 20220920
  Receipt Date: 20220920
  Transmission Date: 20221027
  Serious: Yes (Other)
  Sender: FDA-Public Use
  Company Number: CN-NOVARTISPH-NVSC2022CN209562

PATIENT
  Age: 15 Year
  Sex: Female

DRUGS (5)
  1. TRAMETINIB [Suspect]
     Active Substance: TRAMETINIB
     Indication: Langerhans^ cell histiocytosis
     Dosage: 0.05 MG/KG, QD
     Route: 065
     Dates: start: 201802
  2. TRAMETINIB [Suspect]
     Active Substance: TRAMETINIB
     Dosage: 2 MG/KG, QD
     Route: 065
  3. CLADRIBINE [Suspect]
     Active Substance: CLADRIBINE
     Indication: Langerhans^ cell histiocytosis
     Dosage: 27 MG/M2 COURSE OF TREATMENT (10MG X3D)
     Route: 065
  4. CLADRIBINE [Suspect]
     Active Substance: CLADRIBINE
     Dosage: 27 MG/M2 COURSE OF TREATMENT (8MG X1D)
     Route: 065
  5. CYTARABINE [Suspect]
     Active Substance: CYTARABINE
     Indication: Langerhans^ cell histiocytosis
     Dosage: 140 MG, QD,  5 DAYS, 500 MG/M2/ COURSE OF TREATMENT
     Route: 065

REACTIONS (3)
  - Langerhans^ cell histiocytosis [Unknown]
  - Malignant neoplasm progression [Unknown]
  - Product use in unapproved indication [Unknown]

NARRATIVE: CASE EVENT DATE: 20180101
